FAERS Safety Report 4716530-9 (Version None)
Quarter: 2005Q3

REPORT INFORMATION
  Report Type: 
  Country: None (occurrence: None)
  Receive Date: 20050714
  Receipt Date: 20050701
  Transmission Date: 20060218
  Serious: Yes (Hospitalization)
  Sender: FDA-Public Use
  Company Number: 2005095362

PATIENT
  Sex: Male

DRUGS (1)
  1. MINOXIDIL [Suspect]
     Dosage: ONE ML BID, TOPICAL
     Route: 061
     Dates: start: 20040201

REACTIONS (3)
  - LOSS OF CONSCIOUSNESS [None]
  - PALPITATIONS [None]
  - VENTRICULAR TACHYCARDIA [None]
